FAERS Safety Report 16936930 (Version 1)
Quarter: 2019Q4

REPORT INFORMATION
  Report Type: Spontaneous
  Country: CN (occurrence: CN)
  Receive Date: 20191018
  Receipt Date: 20191018
  Transmission Date: 20200122
  Serious: Yes (Hospitalization)
  Sender: FDA-Public Use
  Company Number: NVSC2019CN003573

PATIENT
  Age: 24 Year
  Sex: Female
  Weight: 56 kg

DRUGS (8)
  1. TRILEPTAL [Suspect]
     Active Substance: OXCARBAZEPINE
     Indication: PSYCHOTIC SYMPTOM
  2. OU LAN NING [Suspect]
     Active Substance: OLANZAPINE
     Indication: BIPOLAR DISORDER
     Dosage: 5 MG, QD
     Route: 048
     Dates: start: 20190904
  3. CHLOROPYRAMINE HYDROCHLORIDE [Suspect]
     Active Substance: CHLOROPYRAMINE HYDROCHLORIDE
     Indication: BIPOLAR DISORDER
     Dosage: 25 MG, BID
     Route: 030
     Dates: start: 20191003, end: 20191005
  4. OU LAN NING [Suspect]
     Active Substance: OLANZAPINE
     Indication: PSYCHOTIC SYMPTOM
     Dosage: 15 MG, QD
     Route: 048
     Dates: start: 20190905, end: 20191007
  5. CHLOROPYRAMINE HYDROCHLORIDE [Suspect]
     Active Substance: CHLOROPYRAMINE HYDROCHLORIDE
     Indication: BIPOLAR DISORDER
     Dosage: 50 MG, BID
     Route: 048
     Dates: start: 20191005, end: 20191007
  6. CHLOROPYRAMINE HYDROCHLORIDE [Suspect]
     Active Substance: CHLOROPYRAMINE HYDROCHLORIDE
     Indication: PSYCHOTIC SYMPTOM
  7. TRILEPTAL [Suspect]
     Active Substance: OXCARBAZEPINE
     Indication: BIPOLAR DISORDER
     Dosage: 0.6 G, BID
     Route: 048
     Dates: start: 20191001, end: 20191007
  8. CHLOROPYRAMINE HYDROCHLORIDE [Suspect]
     Active Substance: CHLOROPYRAMINE HYDROCHLORIDE
     Indication: PSYCHOTIC SYMPTOM

REACTIONS (2)
  - Pyrexia [Unknown]
  - Haemolytic anaemia [Unknown]

NARRATIVE: CASE EVENT DATE: 20191007
